FAERS Safety Report 8536435-5 (Version None)
Quarter: 2012Q3

REPORT INFORMATION
  Report Type: 
  Country: None (occurrence: None)
  Receive Date: 20120725
  Receipt Date: 20120711
  Transmission Date: 20120928
  Serious: Yes (Other)
  Sender: FDA-Public Use
  Company Number: DE-MYLANLABS-2012S1014221

PATIENT
  Age: 13 Year
  Sex: Male

DRUGS (4)
  1. DOXORUBICIN HYDROCHLORIDE [Concomitant]
     Indication: BONE SARCOMA
     Route: 065
  2. CISPLATIN [Concomitant]
     Indication: BONE SARCOMA
     Route: 065
  3. LEUCOVORIN CALCIUM [Concomitant]
     Indication: BONE SARCOMA
     Route: 065
  4. METHOTREXATE [Suspect]
     Indication: BONE SARCOMA
     Dosage: 12G/M2 OVER 4H
     Route: 065

REACTIONS (3)
  - PALMAR-PLANTAR ERYTHRODYSAESTHESIA SYNDROME [None]
  - DERMATITIS BULLOUS [None]
  - STOMATITIS [None]
